FAERS Safety Report 13179241 (Version 1)
Quarter: 2017Q1

REPORT INFORMATION
  Report Type: Spontaneous
  Country: US (occurrence: US)
  Receive Date: 20170202
  Receipt Date: 20170202
  Transmission Date: 20170428
  Serious: No
  Sender: FDA-Public Use
  Company Number: US-MYLANLABS-2015M1047009

PATIENT
  Sex: Male
  Weight: 92.63 kg

DRUGS (6)
  1. PRAVASTATIN. [Concomitant]
     Active Substance: PRAVASTATIN
     Dosage: UNK
     Route: 048
  2. FONDAPARINUX MYLAN [Suspect]
     Active Substance: FONDAPARINUX
     Indication: OFF LABEL USE
  3. LEVETIRACETAM. [Concomitant]
     Active Substance: LEVETIRACETAM
     Dosage: UNK
     Route: 048
  4. CLOPIDOGREL [Concomitant]
     Active Substance: CLOPIDOGREL BISULFATE
     Dosage: UNK
     Route: 048
  5. AMLODIPINE [Concomitant]
     Active Substance: AMLODIPINE BESYLATE
     Dosage: UNK
     Route: 048
  6. FONDAPARINUX MYLAN [Suspect]
     Active Substance: FONDAPARINUX
     Indication: PROTEIN S DEFICIENCY
     Dosage: 7.5 MG, QD
     Route: 058

REACTIONS (1)
  - Injection site pain [Not Recovered/Not Resolved]
